FAERS Safety Report 13829146 (Version 2)
Quarter: 2017Q3

REPORT INFORMATION
  Report Type: Spontaneous
  Country: JP (occurrence: JP)
  Receive Date: 20170803
  Receipt Date: 20170911
  Transmission Date: 20171127
  Serious: Yes (Hospitalization, Other)
  Sender: FDA-Public Use
  Company Number: JP-009507513-1707JPN001232J

PATIENT
  Age: 85 Year
  Sex: Female
  Weight: 55 kg

DRUGS (9)
  1. REBETOL [Suspect]
     Active Substance: RIBAVIRIN
     Indication: CHRONIC HEPATITIS C
     Dosage: 600 MG, UNK
     Route: 048
     Dates: start: 20170629
  2. RABEPRAZOLE NA [Concomitant]
     Active Substance: RABEPRAZOLE SODIUM
     Dosage: 10 MG, UNK
     Route: 048
  3. GASMOTIN [Concomitant]
     Active Substance: MOSAPRIDE CITRATE
     Dosage: 15 MG, UNK
     Route: 048
  4. URSODEOXYCHOLIC ACID [Concomitant]
     Active Substance: URSODIOL
     Dosage: 600 MG, UNK
     Route: 048
  5. AMLODIPINE [Concomitant]
     Active Substance: AMLODIPINE BESYLATE
     Dosage: 5 MG, UNK
     Route: 048
  6. SOVALDI [Suspect]
     Active Substance: SOFOSBUVIR
     Indication: CHRONIC HEPATITIS C
     Dosage: 400 MG, UNK
     Route: 048
     Dates: start: 20170629
  7. BAYASPIRIN [Concomitant]
     Active Substance: ASPIRIN
     Dosage: 100 MG, UNK
     Route: 048
  8. JANUVIA TABLETS 50MG [Concomitant]
     Indication: DIABETES MELLITUS
     Dosage: 50 MG, UNK
     Route: 048
     Dates: start: 20170317
  9. NIFEDIPINE L [Concomitant]
     Dosage: 10 MG, UNK
     Route: 048

REACTIONS (1)
  - Lacunar infarction [Recovered/Resolved]

NARRATIVE: CASE EVENT DATE: 20170710
